FAERS Safety Report 8117718-X (Version None)
Quarter: 2012Q1

REPORT INFORMATION
  Report Type: 
  Country: None (occurrence: None)
  Receive Date: 20120202
  Receipt Date: 20120127
  Transmission Date: 20120608
  Serious: Yes (Hospitalization)
  Sender: FDA-Public Use
  Company Number: DKLU1071159

PATIENT
  Age: 10 Month
  Sex: Female
  Weight: 11.8 kg

DRUGS (4)
  1. FISH OIL (FISH OIL) (CAPSULE) [Concomitant]
  2. MULTIVITAMIN (VIGRAN) (CAPSULE) [Concomitant]
  3. PROBIOTIC (BIFIDOBACTERIUM LACTIS) (CAPSULE) [Concomitant]
  4. SABRIL [Suspect]
     Indication: PRODUCT USED FOR UNKNOWN INDICATION
     Dosage: SEE IMAGE
     Route: 048
     Dates: start: 20110401

REACTIONS (7)
  - SOMNOLENCE [None]
  - VIRAL INFECTION [None]
  - TONGUE DISORDER [None]
  - FATIGUE [None]
  - DECREASED APPETITE [None]
  - NEUTROPHIL COUNT DECREASED [None]
  - DYSKINESIA [None]
